FAERS Safety Report 8728372 (Version 3)
Quarter: 2012Q4

REPORT INFORMATION
  Report Type: 
  Country: ES (occurrence: ES)
  Receive Date: 20120817
  Receipt Date: 20121213
  Transmission Date: 20130627
  Serious: Yes (Death, Hospitalization, Other)
  Sender: FDA-Public Use
  Company Number: ES-MPIJNJ-2012-05548

PATIENT
  Age: 83 Year
  Sex: Female

DRUGS (15)
  1. VELCADE [Suspect]
     Indication: MULTIPLE MYELOMA
     Dosage: 1.3 mg, UNK
     Route: 042
     Dates: start: 20120703, end: 20120713
  2. DEXAMETHASONE [Suspect]
     Indication: MULTIPLE MYELOMA
     Dosage: 20 mg, UNK
     Route: 048
     Dates: start: 20120703, end: 20120714
  3. MOVICOL                            /01053601/ [Concomitant]
     Dosage: UNK
     Dates: start: 20120302
  4. PREDNISONE [Concomitant]
     Dosage: UNK
     Dates: start: 20090625
  5. FUROSEMIDE [Concomitant]
     Dosage: UNK
     Dates: start: 20080508
  6. CANDESARTAN [Concomitant]
     Dosage: UNK
     Dates: start: 20080508
  7. CALCIUM [Concomitant]
     Dosage: UNK
     Dates: start: 20090429
  8. CARVEDILOL [Concomitant]
     Dosage: UNK
     Dates: start: 20080508
  9. OMEPRAZOLE [Concomitant]
     Dosage: UNK
     Dates: start: 20120508
  10. FOLIC ACID [Concomitant]
     Dosage: UNK
     Dates: start: 20080508
  11. ACENOCOUMAROL [Concomitant]
     Dosage: UNK
     Dates: start: 20080305
  12. ACICLOVIR [Concomitant]
     Dosage: UNK
     Dates: start: 20120703
  13. FERROUS SULFATE [Concomitant]
     Dosage: UNK
     Dates: start: 20080508
  14. METOCLOPRAMIDE [Concomitant]
     Dosage: UNK
     Dates: start: 20120710
  15. ALLOPURINOL [Concomitant]
     Dosage: UNK
     Dates: start: 20080508

REACTIONS (4)
  - Cardio-respiratory arrest [Fatal]
  - Vomiting [Recovered/Resolved]
  - International normalised ratio increased [Unknown]
  - Thrombocytopenia [Unknown]
